FAERS Safety Report 20156304 (Version 2)
Quarter: 2022Q2

REPORT INFORMATION
  Report Type: Spontaneous
  Country: US (occurrence: US)
  Receive Date: 20211207
  Receipt Date: 20220524
  Transmission Date: 20220721
  Serious: Yes (Other)
  Sender: FDA-Public Use
  Company Number: US-GILEAD-2021-0557171

PATIENT
  Sex: Female
  Weight: 59.864 kg

DRUGS (10)
  1. ATRIPLA [Suspect]
     Active Substance: EFAVIRENZ\EMTRICITABINE\TENOFOVIR DISOPROXIL FUMARATE
     Indication: HIV infection
     Dosage: UNK
     Route: 048
     Dates: start: 2006, end: 2016
  2. ODEFSEY [Concomitant]
     Active Substance: EMTRICITABINE\RILPIVIRINE HYDROCHLORIDE\TENOFOVIR ALAFENAMIDE FUMARATE
  3. BIKTARVY [Concomitant]
     Active Substance: BICTEGRAVIR SODIUM\EMTRICITABINE\TENOFOVIR ALAFENAMIDE FUMARATE
  4. HYDROCHLOROTHIAZIDE [Concomitant]
     Active Substance: HYDROCHLOROTHIAZIDE
  5. FLUTICASONE [Concomitant]
     Active Substance: FLUTICASONE
  6. LATANOPROST [Concomitant]
     Active Substance: LATANOPROST
  7. MELOXICAM [Concomitant]
     Active Substance: MELOXICAM
  8. TIMOLOL MALEATE [Concomitant]
     Active Substance: TIMOLOL MALEATE
  9. CIMDUO [Concomitant]
     Active Substance: LAMIVUDINE\TENOFOVIR DISOPROXIL FUMARATE
  10. AMLODIPINE BESYLATE [Concomitant]
     Active Substance: AMLODIPINE BESYLATE

REACTIONS (10)
  - Osteoporosis [Not Recovered/Not Resolved]
  - Bone demineralisation [Unknown]
  - Pain [Not Recovered/Not Resolved]
  - Emotional distress [Not Recovered/Not Resolved]
  - Anxiety [Not Recovered/Not Resolved]
  - Anhedonia [Not Recovered/Not Resolved]
  - Back pain [Unknown]
  - Arthralgia [Unknown]
  - Mobility decreased [Not Recovered/Not Resolved]
  - Depression [Unknown]

NARRATIVE: CASE EVENT DATE: 20180101
